FAERS Safety Report 7945829-8 (Version None)
Quarter: 2011Q4

REPORT INFORMATION
  Report Type: 
  Country: None (occurrence: None)
  Receive Date: 20111129
  Receipt Date: 20111118
  Transmission Date: 20120403
  Serious: Yes (Other)
  Sender: FDA-Public Use
  Company Number: PHFR2011GB06043

PATIENT
  Sex: Male

DRUGS (1)
  1. NEORAL [Suspect]
     Dosage: UNK
     Route: 065

REACTIONS (3)
  - MEMORY IMPAIRMENT [None]
  - TRANSPLANT FAILURE [None]
  - CONFUSIONAL STATE [None]
